FAERS Safety Report 5714717-X (Version None)
Quarter: 2008Q2

REPORT INFORMATION
  Report Type: 
  Country: None (occurrence: None)
  Receive Date: 20080423
  Receipt Date: 20080421
  Transmission Date: 20081010
  Serious: Yes (Other)
  Sender: FDA-Public Use
  Company Number: GB-WYE-G01435408

PATIENT
  Sex: Male

DRUGS (1)
  1. TORISEL [Suspect]
     Dosage: 25MG WEEKLY
     Route: 042
     Dates: start: 20080101

REACTIONS (2)
  - COMPUTERISED TOMOGRAM ABNORMAL [None]
  - COUGH [None]
